FAERS Safety Report 12478822 (Version 3)
Quarter: 2016Q3

REPORT INFORMATION
  Report Type: Spontaneous
  Country: US (occurrence: US)
  Receive Date: 20160620
  Receipt Date: 20160712
  Transmission Date: 20161109
  Serious: Yes (Hospitalization)
  Sender: FDA-Public Use
  Company Number: US-TAIHO ONCOLOGY INC-EU-2016-01266

PATIENT
  Age: 56 Year
  Sex: Female

DRUGS (3)
  1. VARENICLINE [Concomitant]
     Active Substance: VARENICLINE
     Dosage: NI
  2. LONSURF [Suspect]
     Active Substance: TIPIRACIL HYDROCHLORIDE\TRIFLURIDINE
     Indication: RECTAL CANCER METASTATIC
     Route: 048
     Dates: start: 20160518, end: 2016
  3. ATROPINE SULFATE/DIPHENOXYLATE HYDROCHLORIDE [Concomitant]
     Dosage: NI

REACTIONS (6)
  - Nausea [Unknown]
  - Abdominal pain [Unknown]
  - Diarrhoea [Unknown]
  - Dehydration [Unknown]
  - Vomiting [Unknown]
  - Stomatitis [Unknown]

NARRATIVE: CASE EVENT DATE: 201606
